FAERS Safety Report 7305010-2 (Version None)
Quarter: 2011Q1

REPORT INFORMATION
  Report Type: 
  Country: None (occurrence: None)
  Receive Date: 20110222
  Receipt Date: 20100629
  Transmission Date: 20110831
  Serious: No
  Sender: FDA-Public Use
  Company Number: US-PFIZER INC-2010072341

PATIENT
  Sex: Female
  Weight: 79.365 kg

DRUGS (4)
  1. PREDNISONE [Concomitant]
     Indication: PEMPHIGUS
     Dosage: 12.5 MG, DAILY
     Route: 048
     Dates: start: 20100101
  2. XALATAN [Suspect]
     Indication: GLAUCOMA
     Dosage: 0.005 %,DAILY
     Route: 047
     Dates: start: 20100409, end: 20100501
  3. MYCOPHENOLATE MOFETIL [Concomitant]
     Indication: PEMPHIGUS
     Dosage: UNK
     Route: 048
     Dates: start: 20100101
  4. SYNTHROID [Concomitant]
     Indication: THYROID DISORDER
     Dosage: 50 MG, DAILY
     Route: 048
     Dates: start: 20100101

REACTIONS (3)
  - EYE PAIN [None]
  - EYE PRURITUS [None]
  - OCULAR HYPERAEMIA [None]
